FAERS Safety Report 9891162 (Version 1)
Quarter: 2014Q1

REPORT INFORMATION
  Report Type: Report from Study
  Country: CA (occurrence: CA)
  Receive Date: 20140212
  Receipt Date: 20140212
  Transmission Date: 20141002
  Serious: Yes (Hospitalization)
  Sender: FDA-Public Use
  Company Number: CA-JNJFOC-20140202873

PATIENT
  Age: 51 Year
  Sex: Female
  Weight: 78 kg

DRUGS (13)
  1. REMICADE [Suspect]
     Indication: CROHN^S DISEASE
     Route: 042
     Dates: start: 20050920
  2. RAMIPRIL [Concomitant]
     Route: 048
  3. ZOPICLONE [Concomitant]
     Dosage: 2.5/5 MG??AS NEEDED
     Route: 048
  4. ATORVASTATIN [Concomitant]
     Route: 048
  5. PANTOPRAZOLE [Concomitant]
     Route: 048
  6. AAS [Concomitant]
     Route: 048
  7. BISOPROLOL [Concomitant]
     Route: 048
  8. RHO-NITRO [Concomitant]
     Dosage: 0.4 MG/PUL??FOR 3 TIMES MAX
     Route: 060
  9. CLOPIDOGREL [Concomitant]
     Route: 048
  10. OLESTYR [Concomitant]
     Dosage: 1/2 SACHET, MAXIMUM 3 TIMES AS NECESSARY.
     Route: 048
  11. FENOFIBRATE [Concomitant]
     Route: 048
  12. PROTYLOL [Concomitant]
     Dosage: DAILY OR TWO TIMES IN A DAY AS NECESSARY
     Route: 048
  13. GRAVOL [Concomitant]
     Dosage: AS NECESSARY
     Route: 048

REACTIONS (1)
  - Amyotrophic lateral sclerosis [Unknown]
